FAERS Safety Report 16825127 (Version 1)
Quarter: 2019Q3

REPORT INFORMATION
  Report Type: Report from Study
  Country: US (occurrence: US)
  Receive Date: 20190919
  Receipt Date: 20190919
  Transmission Date: 20191005
  Serious: Yes (Other)
  Sender: FDA-Public Use
  Company Number: US-ROCHE-2407887

PATIENT
  Age: 62 Year
  Sex: Male
  Weight: 88.98 kg

DRUGS (4)
  1. ACTOS [Concomitant]
     Active Substance: PIOGLITAZONE HYDROCHLORIDE
     Indication: DIABETES MELLITUS
     Dosage: ONGOING: YES
     Route: 048
  2. LANTUS [Concomitant]
     Active Substance: INSULIN GLARGINE
     Indication: DIABETES MELLITUS
     Dosage: 35 UNIT NOT REPORTED?ONGOING: YES
     Route: 058
  3. ASPIRIN [ACETYLSALICYLIC ACID] [Concomitant]
     Active Substance: ASPIRIN
     Route: 048
  4. OCREVUS [Suspect]
     Active Substance: OCRELIZUMAB
     Indication: RELAPSING-REMITTING MULTIPLE SCLEROSIS
     Dosage: ONGOING: YES?INITIAL DOSE: 300 MG DAY 1 AND 300 MG DAY 15?MAINTENANCE DOSE: 600 MG 6 MONTH(ONE TIME)
     Route: 042
     Dates: start: 20170802

REACTIONS (4)
  - Fall [Unknown]
  - Multiple sclerosis relapse [Unknown]
  - Lumbar vertebral fracture [Recovered/Resolved]
  - Urinary tract infection [Recovered/Resolved]

NARRATIVE: CASE EVENT DATE: 20190627
